FAERS Safety Report 13579358 (Version 2)
Quarter: 2017Q2

REPORT INFORMATION
  Report Type: Spontaneous
  Country: US (occurrence: US)
  Receive Date: 20170525
  Receipt Date: 20170608
  Transmission Date: 20170830
  Serious: Yes (Other)
  Sender: FDA-Public Use
  Company Number: US-ROCHE-1939820

PATIENT
  Sex: Female
  Weight: 68.1 kg

DRUGS (1)
  1. XOLAIR [Suspect]
     Active Substance: OMALIZUMAB
     Indication: ASTHMA
     Route: 058
     Dates: start: 20100504

REACTIONS (3)
  - Fracture [Unknown]
  - Ligament injury [Unknown]
  - Peripheral swelling [Unknown]
